FAERS Safety Report 10907636 (Version 4)
Quarter: 2015Q1

REPORT INFORMATION
  Report Type: Spontaneous
  Country: US (occurrence: US)
  Receive Date: 20150312
  Receipt Date: 20150325
  Transmission Date: 20150721
  Serious: Yes (Hospitalization, Other)
  Sender: FDA-Public Use
  Company Number: US-AMGEN-USASP2015021755

PATIENT

DRUGS (2)
  1. METHOTREXATE [Suspect]
     Active Substance: METHOTREXATE
     Indication: PRODUCT USED FOR UNKNOWN INDICATION
     Dosage: UNK
     Route: 065
  2. ENBREL [Suspect]
     Active Substance: ETANERCEPT
     Indication: PRODUCT USED FOR UNKNOWN INDICATION
     Dosage: UNK
     Route: 065

REACTIONS (8)
  - Diverticulitis [Unknown]
  - Mood disorder due to a general medical condition [Unknown]
  - Infection [Unknown]
  - Exostosis [Unknown]
  - Fatigue [Unknown]
  - Basal cell carcinoma [Unknown]
  - Poor venous access [Unknown]
  - Infection susceptibility increased [Unknown]
